FAERS Safety Report 16608524 (Version 1)
Quarter: 2019Q3

REPORT INFORMATION
  Report Type: Spontaneous
  Country: US (occurrence: US)
  Receive Date: 20190722
  Receipt Date: 20190722
  Transmission Date: 20191004
  Serious: Yes (Other)
  Sender: FDA-Public Use
  Company Number: US-OCTA-NGAM11319US

PATIENT
  Age: 31 Year
  Sex: Male
  Weight: 128 kg

DRUGS (1)
  1. PANZYGA [Suspect]
     Active Substance: HUMAN IMMUNOGLOBULIN G
     Indication: CHRONIC INFLAMMATORY DEMYELINATING POLYRADICULONEUROPATHY
     Route: 042
     Dates: start: 20190608, end: 20190612

REACTIONS (6)
  - Headache [Unknown]
  - Rash [Unknown]
  - Blister [Unknown]
  - Abdominal discomfort [Unknown]
  - Photophobia [Unknown]
  - Nausea [Unknown]

NARRATIVE: CASE EVENT DATE: 20190608
